FAERS Safety Report 6122731-8 (Version None)
Quarter: 2009Q1

REPORT INFORMATION
  Report Type: 
  Country: None (occurrence: None)
  Receive Date: 20090318
  Receipt Date: 20090313
  Transmission Date: 20090719
  Serious: Yes (Death, Other)
  Sender: FDA-Public Use
  Company Number: US-CELGENEUS-163-20785-09021149

PATIENT
  Sex: Female

DRUGS (2)
  1. THALOMID [Suspect]
     Indication: MULTIPLE MYELOMA
     Route: 048
     Dates: start: 20060621, end: 20090101
  2. THALOMID [Suspect]
     Dosage: 400-300MG
     Route: 048
     Dates: start: 20030606, end: 20060601

REACTIONS (3)
  - CARDIAC DEATH [None]
  - CARDIAC FAILURE CONGESTIVE [None]
  - PNEUMONIA [None]
